FAERS Safety Report 8614848-0 (Version None)
Quarter: 2012Q3

REPORT INFORMATION
  Report Type: 
  Country: None (occurrence: None)
  Receive Date: 20120823
  Receipt Date: 20120810
  Transmission Date: 20120928
  Serious: Yes (Other)
  Sender: FDA-Public Use
  Company Number: JP-VERTEX PHARMACEUTICAL INC.-2012-019657

PATIENT
  Age: 53 Year
  Sex: Male

DRUGS (9)
  1. PEGINTRON                          /01543001/ [Concomitant]
     Dosage: 1.0 A?G/KG, UNK
     Route: 058
     Dates: start: 20120704, end: 20120725
  2. PEGINTRON                          /01543001/ [Concomitant]
     Indication: HEPATITIS C
     Dosage: 1.5 A?G/KG, UNK
     Route: 058
     Dates: start: 20120613, end: 20120703
  3. URSO                               /00465701/ [Concomitant]
     Dosage: 600 MG, UNK
     Route: 048
  4. GLYCYRON                           /00466401/ [Concomitant]
     Dosage: 6 DF, UNK
     Route: 048
  5. REBETOL [Concomitant]
     Indication: HEPATITIS C
     Dosage: 800 MG, UNK
     Route: 048
     Dates: start: 20120613, end: 20120710
  6. REBETOL [Concomitant]
     Dosage: 600 UNK, UNK
     Route: 048
     Dates: start: 20120711, end: 20120717
  7. REBETOL [Concomitant]
     Dosage: 400 UNK, UNK
     Dates: start: 20120718, end: 20120725
  8. VX-950 [Suspect]
     Indication: HEPATITIS C
     Dosage: 2250 MG, QD
     Route: 048
     Dates: start: 20120613, end: 20120717
  9. VX-950 [Suspect]
     Dosage: 1500 UNK, UNK
     Dates: start: 20120718, end: 20120725

REACTIONS (1)
  - RASH [None]
